FAERS Safety Report 8959141 (Version 1)
Quarter: 2012Q4

REPORT INFORMATION
  Report Type: 
  Country: US (occurrence: US)
  Receive Date: 20121212
  Receipt Date: 20121212
  Transmission Date: 20130627
  Serious: No
  Sender: FDA-Public Use
  Company Number: US-009507513-1212USA001298

PATIENT
  Age: 50 Year
  Sex: Female

DRUGS (16)
  1. RALTEGRAVIR POTASSIUM [Suspect]
     Indication: DEEP VEIN THROMBOSIS
     Dosage: 400 mg, bid
     Route: 048
     Dates: start: 201001
  2. DARUNAVIR (+) RITONAVIR [Interacting]
     Indication: DEEP VEIN THROMBOSIS
     Dosage: 600 mg/100 mg, bid
     Dates: start: 201001
  3. ETRAVIRINE [Interacting]
     Indication: DEEP VEIN THROMBOSIS
     Dosage: 200 mg, bid
     Dates: start: 201001
  4. WARFARIN [Interacting]
     Indication: DEEP VEIN THROMBOSIS
     Dosage: UNK
     Dates: start: 2007
  5. WARFARIN [Interacting]
     Dosage: 13.3 mg, qw
     Dates: start: 200802, end: 200912
  6. WARFARIN [Interacting]
     Dosage: 19.3 mg, qw
     Dates: start: 201001
  7. DAPSONE [Concomitant]
     Dosage: UNK
     Dates: start: 200708, end: 201112
  8. FLUCONAZOLE [Concomitant]
     Dosage: UNK
     Dates: start: 200804, end: 201112
  9. VALGANCICLOVIR HYDROCHLORIDE [Concomitant]
     Dosage: UNK
     Dates: start: 200708, end: 201112
  10. AZITHROMYCIN [Concomitant]
     Dosage: UNK, qw
     Dates: start: 200908, end: 201006
  11. LISINOPRIL [Concomitant]
     Dosage: UNK
     Dates: start: 200808
  12. BUSPIRONE HYDROCHLORIDE [Concomitant]
     Dosage: UNK
     Dates: start: 200708, end: 201101
  13. ACETAMINOPHEN (+) HYDROCODONE BITARTRATE [Concomitant]
     Dosage: UNK
     Dates: start: 200708
  14. PREDNISONE [Concomitant]
     Dosage: UNK
     Dates: start: 200708
  15. FLUDROCORTISONE [Concomitant]
     Dosage: UNK
     Dates: start: 200911, end: 201201
  16. POTASSIUM CHLORIDE [Concomitant]
     Dosage: UNK
     Dates: start: 200708, end: 201107

REACTIONS (2)
  - Drug interaction [Unknown]
  - Therapy regimen changed [Unknown]
